FAERS Safety Report 21617488 (Version 2)
Quarter: 2022Q4

REPORT INFORMATION
  Report Type: Report from Study
  Country: US (occurrence: US)
  Receive Date: 20221119
  Receipt Date: 20221122
  Transmission Date: 20230113
  Serious: No
  Sender: FDA-Public Use
  Company Number: US-ABBVIE-4186335

PATIENT
  Age: 30 Year
  Sex: Male

DRUGS (2)
  1. HUMIRA [Suspect]
     Active Substance: ADALIMUMAB
     Indication: Psoriatic arthropathy
     Dosage: CITRATE FREE.?FROM STRENGTH: 40 MG
     Route: 058
  2. HUMIRA [Suspect]
     Active Substance: ADALIMUMAB
     Indication: Psoriasis

REACTIONS (4)
  - Feeling abnormal [Not Recovered/Not Resolved]
  - Ear pain [Not Recovered/Not Resolved]
  - COVID-19 [Unknown]
  - Upper respiratory tract infection [Recovering/Resolving]

NARRATIVE: CASE EVENT DATE: 20221030
